FAERS Safety Report 17630934 (Version 1)
Quarter: 2020Q2

REPORT INFORMATION
  Report Type: Spontaneous
  Country: US (occurrence: US)
  Receive Date: 20200405
  Receipt Date: 20200405
  Transmission Date: 20200713
  Serious: Yes (Disabling)
  Sender: FDA-Public Use
  Company Number: None

PATIENT
  Age: 57 Year
  Sex: Female

DRUGS (1)
  1. TERBUTALINE [Suspect]
     Active Substance: TERBUTALINE

REACTIONS (2)
  - Bronchospasm [None]
  - Cardiac murmur [None]
